FAERS Safety Report 24592494 (Version 2)
Quarter: 2024Q4

REPORT INFORMATION
  Report Type: Spontaneous
  Country: CZ (occurrence: CZ)
  Receive Date: 20241108
  Receipt Date: 20241116
  Transmission Date: 20250115
  Serious: Yes (Life-Threatening, Hospitalization)
  Sender: MACLEODS
  Company Number: CZ-MLMSERVICE-20241024-PI239053-00246-1

PATIENT

DRUGS (5)
  1. OLANZAPINE [Suspect]
     Active Substance: OLANZAPINE
     Indication: Antipsychotic therapy
     Dosage: 0-1-0-1, 5 MG
     Route: 048
  2. TIAPRIDE [Suspect]
     Active Substance: TIAPRIDE
     Indication: Antipsychotic therapy
     Dosage: 200 MG, SINGLE APPLICATION (1 {TOTAL})
     Route: 048
  3. MELPERONE [Suspect]
     Active Substance: MELPERONE
     Indication: Antipsychotic therapy
     Dosage: 1-1-1-2, 25 MG
     Route: 065
  4. BETAXOLOL [Concomitant]
     Active Substance: BETAXOLOL
     Indication: Product used for unknown indication
     Route: 065
  5. DIOSMIN\HESPERIDIN [Concomitant]
     Active Substance: DIOSMIN\HESPERIDIN
     Indication: Product used for unknown indication
     Route: 065

REACTIONS (4)
  - Generalised tonic-clonic seizure [Recovered/Resolved]
  - Myoglobin blood increased [Recovered/Resolved]
  - Hypokalaemia [Recovered/Resolved]
  - Neuroleptic malignant syndrome [Recovered/Resolved]
